FAERS Safety Report 12536843 (Version 5)
Quarter: 2017Q4

REPORT INFORMATION
  Report Type: Report from Study
  Country: US (occurrence: US)
  Receive Date: 20160707
  Receipt Date: 20171219
  Transmission Date: 20180320
  Serious: Yes (Hospitalization)
  Sender: FDA-Public Use
  Company Number: US-JNJFOC-20160625250

PATIENT
  Age: 28 Year
  Sex: Female
  Weight: 52.62 kg

DRUGS (2)
  1. STELARA [Suspect]
     Active Substance: USTEKINUMAB
     Indication: PSORIASIS
     Route: 058
     Dates: start: 20100126, end: 20130409
  2. STELARA [Suspect]
     Active Substance: USTEKINUMAB
     Indication: PSORIASIS
     Route: 058
     Dates: start: 20130625, end: 20170608

REACTIONS (3)
  - Post procedural bile leak [Recovered/Resolved]
  - Laryngitis [Unknown]
  - Biliary colic [Unknown]

NARRATIVE: CASE EVENT DATE: 20150615
